FAERS Safety Report 5089060-5 (Version None)
Quarter: 2006Q3

REPORT INFORMATION
  Report Type: 
  Country: None (occurrence: None)
  Receive Date: 20060825
  Receipt Date: 20060817
  Transmission Date: 20061208
  Serious: Yes (Other)
  Sender: FDA-Public Use
  Company Number: US-GLAXOSMITHKLINE-A0617453A

PATIENT
  Age: 52 Year

DRUGS (4)
  1. GOODY'S PM POWDER [Suspect]
     Indication: HEADACHE
     Dates: start: 20060801
  2. LORTAB [Concomitant]
  3. BLOOD PRESSURE MEDICATION [Concomitant]
  4. LIPITOR [Concomitant]

REACTIONS (6)
  - ABNORMAL BEHAVIOUR [None]
  - AMNESIA [None]
  - HALLUCINATION [None]
  - INCOHERENT [None]
  - MENTAL DISORDER [None]
  - SLEEP WALKING [None]
